FAERS Safety Report 23537303 (Version 1)
Quarter: 2024Q1

REPORT INFORMATION
  Report Type: Report from Study
  Country: US (occurrence: US)
  Receive Date: 20240219
  Receipt Date: 20240219
  Transmission Date: 20240410
  Serious: Yes (Other)
  Sender: FDA-Public Use
  Company Number: US-OTSUKA PHARMACEUTICAL NETHERLANDS B.V.-AUR-004075

PATIENT
  Sex: Female

DRUGS (2)
  1. LUPKYNIS [Suspect]
     Active Substance: VOCLOSPORIN
     Indication: Lupus nephritis
     Dosage: 23.7 MILLIGRAM, BID
     Route: 048
     Dates: start: 20230801
  2. LUPKYNIS [Suspect]
     Active Substance: VOCLOSPORIN
     Dosage: 23.7 MILLIGRAM, BID
     Route: 048
     Dates: start: 20230801

REACTIONS (11)
  - Hypertension [Recovering/Resolving]
  - Urine abnormality [Unknown]
  - Rash [Unknown]
  - Faeces discoloured [Unknown]
  - Limb discomfort [Unknown]
  - Peripheral swelling [Unknown]
  - Cough [Unknown]
  - Abdominal discomfort [Unknown]
  - Diarrhoea [Unknown]
  - Tremor [Unknown]
  - Product packaging difficult to open [Unknown]
